FAERS Safety Report 24293500 (Version 1)
Quarter: 2024Q3

REPORT INFORMATION
  Report Type: Spontaneous
  Country: US (occurrence: None)
  Receive Date: 20240906
  Receipt Date: 20240906
  Transmission Date: 20241017
  Serious: No
  Sender: DOMPE FARMACEUTICI
  Company Number: US-FARMAPROD-202308-202401-0267

PATIENT
  Sex: Male

DRUGS (14)
  1. OXERVATE [Suspect]
     Active Substance: CENEGERMIN-BKBJ
     Indication: Neurotrophic keratopathy
     Route: 047
     Dates: start: 20231219
  2. DEXAMETHASONE\NEOMYCIN\POLYMYXIN B SULFATE [Concomitant]
     Active Substance: DEXAMETHASONE\NEOMYCIN\POLYMYXIN B SULFATE
  3. CEQUA [Concomitant]
     Active Substance: CYCLOSPORINE
  4. LOTEPREDNOL ETABONATE [Concomitant]
     Active Substance: LOTEPREDNOL ETABONATE
  5. MAGNESIUM [Concomitant]
     Active Substance: MAGNESIUM
  6. VITAMINS [Concomitant]
     Active Substance: VITAMINS
  7. PREGABALIN [Concomitant]
     Active Substance: PREGABALIN
  8. DULOXETINE HYDROCHLORIDE [Concomitant]
     Active Substance: DULOXETINE HYDROCHLORIDE
  9. AMLODIPINE BESYLATE [Concomitant]
     Active Substance: AMLODIPINE BESYLATE
  10. METOPROLOL SUCCINATE [Concomitant]
     Active Substance: METOPROLOL SUCCINATE
  11. IBUPROFEN [Concomitant]
     Active Substance: IBUPROFEN
  12. ASPIRIN [Concomitant]
     Active Substance: ASPIRIN
  13. TAMSULOSIN HYDROCHLORIDE [Concomitant]
     Active Substance: TAMSULOSIN HYDROCHLORIDE
  14. LISINOPRIL AND HYDROCHLOROTHIAZIDE [Concomitant]
     Active Substance: HYDROCHLOROTHIAZIDE\LISINOPRIL

REACTIONS (2)
  - Off label use [Unknown]
  - Intraocular pressure increased [Unknown]
